FAERS Safety Report 9275148 (Version 1)
Quarter: 2013Q2

REPORT INFORMATION
  Report Type: Spontaneous
  Country: US (occurrence: US)
  Receive Date: 20130507
  Receipt Date: 20130507
  Transmission Date: 20140414
  Serious: Yes (Other)
  Sender: FDA-Public Use
  Company Number: US-PFIZER INC-2013137966

PATIENT
  Age: 31 Year
  Sex: Female
  Weight: 74.38 kg

DRUGS (2)
  1. ALAVERT [Suspect]
     Indication: SINUSITIS
     Dosage: 10 MG, 1X/DAY
     Route: 048
     Dates: end: 20130430
  2. ALAVERT [Suspect]
     Indication: HYPERSENSITIVITY

REACTIONS (4)
  - Thyroid disorder [Unknown]
  - Drug ineffective [Unknown]
  - Epistaxis [Unknown]
  - Sneezing [Unknown]
